FAERS Safety Report 9171570 (Version 2)
Quarter: 2013Q3

REPORT INFORMATION
  Report Type: Spontaneous
  Country: US (occurrence: US)
  Receive Date: 20130319
  Receipt Date: 20130903
  Transmission Date: 20140515
  Serious: Yes (Death, Hospitalization)
  Sender: FDA-Public Use
  Company Number: US-GLAXOSMITHKLINE-A1016268A

PATIENT
  Age: 74 Year
  Sex: Male

DRUGS (1)
  1. AVANDIA [Suspect]
     Indication: DIABETES MELLITUS
     Dosage: 8MG PER DAY
     Route: 048
     Dates: start: 200101, end: 201112

REACTIONS (5)
  - Brain injury [Fatal]
  - Myocardial infarction [Unknown]
  - Cardio-respiratory arrest [Fatal]
  - Pulmonary hypertension [Unknown]
  - Cardiomyopathy [Unknown]
